FAERS Safety Report 14259598 (Version 4)
Quarter: 2018Q2

REPORT INFORMATION
  Report Type: Spontaneous
  Country: FR (occurrence: FR)
  Receive Date: 20171207
  Receipt Date: 20180530
  Transmission Date: 20180711
  Serious: Yes (Other)
  Sender: FDA-Public Use
  Company Number: FR-MYLANLABS-2017M1077085

PATIENT
  Age: 50 Year
  Sex: Female

DRUGS (3)
  1. FLUOROURACIL. [Suspect]
     Active Substance: FLUOROURACIL
     Indication: RECTAL CANCER
  2. FLUOROURACIL. [Suspect]
     Active Substance: FLUOROURACIL
     Indication: RECTAL CANCER
     Dosage: 2 AND 3 CYCLES OF FLUOROURACIL
     Route: 065
  3. CISPLATIN. [Suspect]
     Active Substance: CISPLATIN
     Indication: RECTAL CANCER
     Dosage: EVERY 3 CYCLICAL

REACTIONS (4)
  - Sepsis [Unknown]
  - Anal inflammation [Unknown]
  - Off label use [Unknown]
  - Pancytopenia [Unknown]
